FAERS Safety Report 25951752 (Version 2)
Quarter: 2025Q4

REPORT INFORMATION
  Report Type: Spontaneous
  Country: US (occurrence: US)
  Receive Date: 20251023
  Receipt Date: 20251105
  Transmission Date: 20260118
  Serious: No
  Sender: GE HEALTHCARE
  Company Number: US-GE HEALTHCARE-2025CSU014076

PATIENT

DRUGS (1)
  1. OMNIPAQUE [Suspect]
     Active Substance: IOHEXOL
     Indication: Diagnostic procedure
     Dosage: UNK, TOTAL
     Route: 065
     Dates: start: 20251008

REACTIONS (3)
  - Product temperature excursion issue [Unknown]
  - Vomiting projectile [Unknown]
  - Urticaria [Unknown]

NARRATIVE: CASE EVENT DATE: 20251008
